FAERS Safety Report 9966263 (Version 2)
Quarter: 2014Q1

REPORT INFORMATION
  Report Type: Report from Study
  Country: US (occurrence: US)
  Receive Date: 20140305
  Receipt Date: 20140305
  Transmission Date: 20141002
  Serious: No
  Sender: FDA-Public Use
  Company Number: US-ABBVIE-13P-163-1114071-00

PATIENT
  Age: 48 Year
  Sex: Female
  Weight: 41.77 kg

DRUGS (4)
  1. HUMIRA [Suspect]
     Indication: CROHN^S DISEASE
     Dates: start: 20130701, end: 20130701
  2. HUMIRA [Suspect]
     Dates: start: 20130715, end: 20130715
  3. HUMIRA [Suspect]
     Dates: start: 20130729
  4. CALCIUM [Concomitant]
     Indication: PRODUCT USED FOR UNKNOWN INDICATION

REACTIONS (1)
  - Injection site pain [Not Recovered/Not Resolved]
